FAERS Safety Report 23118867 (Version 1)
Quarter: 2023Q4

REPORT INFORMATION
  Report Type: Spontaneous
  Country: GB (occurrence: GB)
  Receive Date: 20231028
  Receipt Date: 20231028
  Transmission Date: 20240109
  Serious: Yes (Other)
  Sender: FDA-Public Use
  Company Number: None

PATIENT
  Age: 87 Year
  Sex: Male

DRUGS (4)
  1. DEXAMETHASONE [Suspect]
     Active Substance: DEXAMETHASONE
     Indication: Central nervous system lesion
     Dosage: 16 MILLIGRAM DAILY; DEXAMETHASONE 2MG TABLETS 8MG BD 12/7 THEN 6MG BD 3/7 THEN 4MG BD 3/7 THEN 2MG B
     Route: 065
  2. DEXAMETHASONE [Suspect]
     Active Substance: DEXAMETHASONE
     Dosage: 12 MILLIGRAM DAILY; UNIT DOSE : 6 MG, BD, DURATION : 3 DAYS, STRENGTH : 2 MG
     Route: 065
  3. DEXAMETHASONE [Suspect]
     Active Substance: DEXAMETHASONE
     Dosage: 8 MILLIGRAM DAILY; UNIT DOSE : 4 MG, BD, DURATION : 3 DAYS, STRENGTH : 2 MG
     Route: 065
  4. DEXAMETHASONE [Suspect]
     Active Substance: DEXAMETHASONE
     Dosage: 4 MILLIGRAM DAILY; UNIT DOSE : 2 MG, BD, DURATION : 3 DAYS, STRENGTH : 2 MG
     Route: 065

REACTIONS (1)
  - Hyperglycaemia [Unknown]
